FAERS Safety Report 5039210-1 (Version None)
Quarter: 2006Q2

REPORT INFORMATION
  Report Type: 
  Country: None (occurrence: None)
  Receive Date: 20060623
  Receipt Date: 20060609
  Transmission Date: 20061013
  Serious: Yes (Hospitalization)
  Sender: FDA-Public Use
  Company Number: 2006BI008389

PATIENT
  Age: 67 Year
  Sex: Female
  Weight: 79.8331 kg

DRUGS (8)
  1. AVONEX [Suspect]
     Indication: MULTIPLE SCLEROSIS
     Dosage: 30 UG;QW;IM
     Route: 030
     Dates: start: 20010101
  2. AVONEX [Suspect]
     Indication: MULTIPLE SCLEROSIS
     Dosage: 30 UG;QW;IM
     Route: 030
     Dates: end: 20050501
  3. COZAAR [Concomitant]
  4. PROPRANOLOL [Concomitant]
  5. SYNTHROID [Concomitant]
  6. VITAMIN [Concomitant]
  7. CALCIUM GLUCONATE [Concomitant]
  8. URSAL FORTE [Concomitant]

REACTIONS (9)
  - BLOOD POTASSIUM DECREASED [None]
  - CONDITION AGGRAVATED [None]
  - INTERVERTEBRAL DISC PROTRUSION [None]
  - JOINT SWELLING [None]
  - LAPAROSCOPY [None]
  - MULTIPLE SCLEROSIS [None]
  - PAIN IN EXTREMITY [None]
  - PROCEDURAL PAIN [None]
  - SPINAL COLUMN STENOSIS [None]
